FAERS Safety Report 6188617-8 (Version None)
Quarter: 2009Q2

REPORT INFORMATION
  Report Type: 
  Country: None (occurrence: None)
  Receive Date: 20090513
  Receipt Date: 20090505
  Transmission Date: 20091009
  Serious: Yes (Hospitalization)
  Sender: FDA-Public Use
  Company Number: B0572740A

PATIENT
  Sex: Female

DRUGS (2)
  1. SERETIDE [Suspect]
     Route: 055
     Dates: start: 20090107
  2. AMOXICILLIN [Suspect]
     Indication: ESCHERICHIA URINARY TRACT INFECTION
     Route: 048
     Dates: start: 20081230, end: 20090115

REACTIONS (1)
  - CLOSTRIDIUM DIFFICILE COLITIS [None]
